FAERS Safety Report 24251594 (Version 5)
Quarter: 2024Q4

REPORT INFORMATION
  Report Type: Report from Study
  Country: US (occurrence: US)
  Receive Date: 20240827
  Receipt Date: 20241107
  Transmission Date: 20250115
  Serious: Yes (Other)
  Sender: ABBVIE
  Company Number: US-ABBVIE-5889431

PATIENT
  Age: 67 Year
  Sex: Female
  Weight: 134 kg

DRUGS (21)
  1. SKYRIZI [Suspect]
     Active Substance: RISANKIZUMAB-RZAA
     Indication: Psoriasis
     Route: 058
     Dates: start: 20220325
  2. SKYRIZI [Suspect]
     Active Substance: RISANKIZUMAB-RZAA
     Route: 058
     Dates: start: 20240517
  3. ASPIRIN [Concomitant]
     Active Substance: ASPIRIN
     Indication: Cardiovascular event prophylaxis
     Dosage: FREQUNCY: PM
     Route: 048
     Dates: start: 2023
  4. VITAMIN B12 [Concomitant]
     Active Substance: CYANOCOBALAMIN
     Indication: Vitamin supplementation
     Dosage: FREQUNCU : AM
     Route: 048
     Dates: start: 2021
  5. FAMOTIDINE [Concomitant]
     Active Substance: FAMOTIDINE
     Indication: Gastrooesophageal reflux disease
     Dosage: FREQUNCY : AM/PM
     Route: 048
     Dates: start: 2021
  6. LEVOMEFOLIC ACID [Concomitant]
     Active Substance: LEVOMEFOLIC ACID
     Indication: Vitamin supplementation
     Dosage: FREQUNCY: PM
     Route: 048
     Dates: start: 2023
  7. TRAZODONE [Concomitant]
     Active Substance: TRAZODONE HYDROCHLORIDE
     Indication: Sleep disorder
     Dosage: FREQUNCY: PM
     Route: 048
     Dates: start: 2005
  8. LISINOPRIL [Concomitant]
     Active Substance: LISINOPRIL
     Indication: Hypertension
     Dosage: FREQUNCY: AM
     Route: 048
     Dates: start: 2016
  9. LAMICTAL [Concomitant]
     Active Substance: LAMOTRIGINE
     Indication: Mood swings
     Dosage: FREQUNCY: PM
     Route: 048
     Dates: start: 2012
  10. EFFEXOR [Concomitant]
     Active Substance: VENLAFAXINE HYDROCHLORIDE
     Indication: Depression
     Dosage: FREQUNCY: AM
     Route: 048
     Dates: start: 2010
  11. IRON [Concomitant]
     Active Substance: IRON
     Indication: Mineral supplementation
  12. ROSUVASTATIN [Concomitant]
     Active Substance: ROSUVASTATIN
     Indication: Hyperlipidaemia
     Dosage: FREQUNCY: PM
     Route: 048
     Dates: start: 2023
  13. METFORMIN [Concomitant]
     Active Substance: METFORMIN HYDROCHLORIDE
     Indication: Glucose tolerance impaired
     Dosage: FREQUNCY: AM/PM
     Route: 048
     Dates: start: 2019
  14. VITAMIN D3 [Concomitant]
     Active Substance: CHOLECALCIFEROL
     Indication: Vitamin supplementation
  15. MELATONIN [Concomitant]
     Active Substance: MELATONIN
     Indication: Sleep disorder
     Route: 048
     Dates: start: 2023, end: 2023
  16. MINIPRESS [Concomitant]
     Active Substance: PRAZOSIN HYDROCHLORIDE
     Indication: Sleep disorder
     Dosage: 2 MG
  17. PLAVIX [Concomitant]
     Active Substance: CLOPIDOGREL BISULFATE
     Indication: Cardiovascular event prophylaxis
     Route: 048
     Dates: start: 2024
  18. PRAZOSIN [Concomitant]
     Active Substance: PRAZOSIN\PRAZOSIN HYDROCHLORIDE
     Indication: Sleep disorder
     Dosage: FREQUNCY: PM
     Route: 048
     Dates: start: 2020
  19. OCUVITE [Concomitant]
     Active Substance: VITAMINS
     Indication: Vitamin supplementation
     Dosage: 1 EACH, GELCAP
     Route: 048
     Dates: start: 2002
  20. COLACE [Concomitant]
     Active Substance: DOCUSATE SODIUM
     Indication: Constipation
     Dosage: FREQUNCY: AM, GELCAP
     Route: 048
     Dates: start: 2005
  21. FERROUS SULFATE [Concomitant]
     Active Substance: FERROUS SULFATE
     Indication: Mineral supplementation
     Dosage: FREQUNCY : AM/PM
     Route: 048
     Dates: start: 2023

REACTIONS (2)
  - Cardiac disorder [Recovering/Resolving]
  - Sleep disorder [Unknown]

NARRATIVE: CASE EVENT DATE: 20230101
